FAERS Safety Report 5227759-8 (Version None)
Quarter: 2007Q1

REPORT INFORMATION
  Report Type: 
  Country: None (occurrence: None)
  Receive Date: 20070202
  Receipt Date: 20070126
  Transmission Date: 20070707
  Serious: Yes (Other)
  Sender: FDA-Public Use
  Company Number: FR-PFIZER INC-2007007530

PATIENT
  Sex: Female

DRUGS (1)
  1. TAHOR [Suspect]

REACTIONS (2)
  - BLOOD AMYLASE INCREASED [None]
  - CARBOHYDRATE ANTIGEN 19-9 INCREASED [None]
